FAERS Safety Report 4875267-6 (Version None)
Quarter: 2006Q1

REPORT INFORMATION
  Report Type: 
  Country: None (occurrence: None)
  Receive Date: 20060109
  Receipt Date: 20050112
  Transmission Date: 20060701
  Serious: Yes (Hospitalization, Disabling, Other)
  Sender: FDA-Public Use
  Company Number: US-MERCK-0501USA02337

PATIENT
  Sex: Male
  Weight: 89 kg

DRUGS (1)
  1. VIOXX [Suspect]
     Indication: ARTHRITIS
     Route: 048
     Dates: start: 20020103, end: 20040401

REACTIONS (11)
  - AMNESIA [None]
  - CAROTID ARTERY STENOSIS [None]
  - CEREBROVASCULAR ACCIDENT [None]
  - COMA [None]
  - DYSPNOEA [None]
  - ENCEPHALITIS [None]
  - GAIT DISTURBANCE [None]
  - KIDNEY INFECTION [None]
  - NEPHROLITHIASIS [None]
  - RENAL FAILURE [None]
  - VIRAL INFECTION [None]
